FAERS Safety Report 23080310 (Version 2)
Quarter: 2023Q4

REPORT INFORMATION
  Report Type: Report from Study
  Country: PH (occurrence: PH)
  Receive Date: 20231018
  Receipt Date: 20231031
  Transmission Date: 20240109
  Serious: Yes (Hospitalization)
  Sender: FDA-Public Use
  Company Number: PH-Eisai Medical Research-EC-2022-120293

PATIENT
  Age: 47 Year
  Sex: Male
  Weight: 46.5 kg

DRUGS (8)
  1. LENVATINIB [Suspect]
     Active Substance: LENVATINIB
     Indication: Clear cell renal cell carcinoma
     Route: 048
     Dates: start: 20220721, end: 20220726
  2. LENVATINIB [Suspect]
     Active Substance: LENVATINIB
     Dosage: STARTING DOSE AT 14 MG (DOSE REDUCED)
     Route: 048
     Dates: start: 20220823
  3. QUAVONLIMAB [Suspect]
     Active Substance: QUAVONLIMAB
     Indication: Clear cell renal cell carcinoma
     Dosage: MK-1308A (QUAVONLIMAB (MK-1308) 25MG + PEMBROLIZUMAB (MK-3475) 400MG)
     Route: 041
     Dates: start: 20220721, end: 20220721
  4. PEMBROLIZUMAB [Suspect]
     Active Substance: PEMBROLIZUMAB
     Dosage: MK-1308A (QUAVONLIMAB (MK-1308) 25MG + PEMBROLIZUMAB (MK-3475) 400MG)
     Route: 041
     Dates: start: 20220901
  5. TRAMADOL HYDROCHLORIDE [Concomitant]
     Active Substance: TRAMADOL HYDROCHLORIDE
     Dates: start: 202207, end: 202207
  6. AMLODIPINE [Concomitant]
     Active Substance: AMLODIPINE BESYLATE
     Dates: start: 201601, end: 20220810
  7. ACETAMINOPHEN [Concomitant]
     Active Substance: ACETAMINOPHEN
     Dates: start: 20220721, end: 20220721
  8. CELECOXIB [Concomitant]
     Active Substance: CELECOXIB
     Dates: start: 202206, end: 202211

REACTIONS (2)
  - Pulmonary haemorrhage [Recovered/Resolved]
  - Anaemia [Recovered/Resolved]

NARRATIVE: CASE EVENT DATE: 20220726
